FAERS Safety Report 25324839 (Version 1)
Quarter: 2025Q2

REPORT INFORMATION
  Report Type: Spontaneous
  Country: US (occurrence: US)
  Receive Date: 20250516
  Receipt Date: 20250516
  Transmission Date: 20250716
  Serious: Yes (Hospitalization, Other)
  Sender: CHATTEM
  Company Number: US-OPELLA-2025OHG014838

PATIENT
  Age: 35 Year
  Sex: Female

DRUGS (1)
  1. DIPHENHYDRAMINE [Suspect]
     Active Substance: DIPHENHYDRAMINE
     Indication: Intentional self-injury
     Route: 048

REACTIONS (6)
  - Hypokalaemia [Unknown]
  - Bundle branch block left [Recovered/Resolved]
  - Depressed level of consciousness [Unknown]
  - Sinus tachycardia [Unknown]
  - Generalised tonic-clonic seizure [Unknown]
  - Intentional overdose [Unknown]
